FAERS Safety Report 9619523 (Version 5)
Quarter: 2014Q3

REPORT INFORMATION
  Report Type: Spontaneous
  Country: US (occurrence: US)
  Receive Date: 20131014
  Receipt Date: 20140813
  Transmission Date: 20150326
  Serious: Yes (Hospitalization, Other)
  Sender: FDA-Public Use
  Company Number: US-BAYER-2013-123289

PATIENT
  Age: 35 Year
  Sex: Female

DRUGS (8)
  1. PRENATE ULTRA [Concomitant]
  2. DEMEROL [Concomitant]
     Active Substance: MEPERIDINE HYDROCHLORIDE
  3. MIRENA [Suspect]
     Active Substance: LEVONORGESTREL
     Indication: CONTRACEPTION
     Dosage: 20 MCG/24HR, CONT
     Route: 015
     Dates: start: 20091124, end: 20110923
  4. KEPPRA [Concomitant]
     Active Substance: LEVETIRACETAM
     Indication: CONVULSION
     Dosage: 500 MG, UNK
     Dates: start: 2008, end: 2013
  5. PHENERGAN [Concomitant]
     Active Substance: PROMETHAZINE HYDROCHLORIDE
  6. MIRENA [Suspect]
     Active Substance: LEVONORGESTREL
     Indication: CONTRACEPTION
     Dosage: 20 MCG/24HR, CONT
     Route: 015
     Dates: start: 20070327
  7. ZOLOFT [Concomitant]
     Active Substance: SERTRALINE HYDROCHLORIDE
     Indication: ANXIETY
     Dosage: 100 MG, UNK
     Dates: start: 2009, end: 2013
  8. MOTRIN [Concomitant]
     Active Substance: IBUPROFEN

REACTIONS (7)
  - Procedural pain [None]
  - Uterine perforation [None]
  - Emotional distress [None]
  - Pregnancy with contraceptive device [None]
  - Injury associated with device [None]
  - General physical health deterioration [None]
  - Drug ineffective [None]

NARRATIVE: CASE EVENT DATE: 20121014
